FAERS Safety Report 6062595-4 (Version None)
Quarter: 2009Q1

REPORT INFORMATION
  Report Type: 
  Country: None (occurrence: None)
  Receive Date: 20090203
  Receipt Date: 20090122
  Transmission Date: 20090719
  Serious: Yes (Hospitalization)
  Sender: FDA-Public Use
  Company Number: FR-PFIZER INC-2009161168

PATIENT

DRUGS (14)
  1. TRIFLUCAN [Suspect]
     Dosage: DAILY
     Route: 048
     Dates: start: 20081209
  2. WARFARIN [Interacting]
     Dosage: FREQUENCY: EVERY DAY;
     Route: 048
     Dates: start: 20081210, end: 20081216
  3. OFLOXACIN [Interacting]
     Dosage: FREQUENCY: EVERY DAY;
     Route: 048
     Dates: start: 20081210
  4. FUROSEMIDE [Concomitant]
  5. BISOPROLOL FUMARATE [Concomitant]
  6. RAMIPRIL [Concomitant]
  7. KARDEGIC [Concomitant]
  8. PANTOPRAZOLE [Concomitant]
  9. VENLAFAXINE HYDROCHLORIDE [Concomitant]
  10. MACROGOL [Concomitant]
  11. ZOPICLONE [Concomitant]
  12. PARACETAMOL [Concomitant]
  13. SODIUM ALGINATE [Concomitant]
  14. SODIUM BICARBONATE [Concomitant]

REACTIONS (1)
  - INTERNATIONAL NORMALISED RATIO INCREASED [None]
